FAERS Safety Report 4503667-2 (Version None)
Quarter: 2004Q4

REPORT INFORMATION
  Report Type: 
  Country: None (occurrence: None)
  Receive Date: 20041112
  Receipt Date: 20041102
  Transmission Date: 20050328
  Serious: Yes (Other)
  Sender: FDA-Public Use
  Company Number: 2004242498JP

PATIENT
  Age: 46 Year
  Sex: Male

DRUGS (1)
  1. DELTA-CORTEF [Suspect]
     Indication: ACUTE RESPIRATORY DISTRESS SYNDROME

REACTIONS (2)
  - DIABETES MELLITUS [None]
  - PNEUMOCYSTIS CARINII PNEUMONIA [None]
